FAERS Safety Report 4989716-6 (Version None)
Quarter: 2006Q2

REPORT INFORMATION
  Report Type: 
  Country: None (occurrence: None)
  Receive Date: 20060501
  Receipt Date: 20060420
  Transmission Date: 20061013
  Serious: Yes (Hospitalization)
  Sender: FDA-Public Use
  Company Number: 002#1#2006-00170

PATIENT
  Age: 9 Year
  Sex: Male

DRUGS (2)
  1. HYOSCYAMINE-SYLFATE-ELIXIR (HYOSCYAMINE SULFATE) [Suspect]
     Indication: ABDOMINAL PAIN
     Dosage: 62.5 MCG, 1 IN 4 H, ORAL
     Route: 048
     Dates: start: 20060416, end: 20060401
  2. ATOMOXETINE-HYDROCHLORIDE [Concomitant]

REACTIONS (3)
  - HEADACHE [None]
  - HYPERTENSION [None]
  - PHARMACEUTICAL PRODUCT COMPLAINT [None]
